FAERS Safety Report 9807427 (Version 2)
Quarter: 2015Q3

REPORT INFORMATION
  Report Type: Spontaneous
  Country: US (occurrence: US)
  Receive Date: 20140110
  Receipt Date: 20150812
  Transmission Date: 20151125
  Serious: No
  Sender: FDA-Public Use
  Company Number: US-PFIZER INC-2014008633

PATIENT
  Sex: Female

DRUGS (1)
  1. LYRICA [Suspect]
     Active Substance: PREGABALIN
     Dosage: UNK

REACTIONS (5)
  - Sciatica [Unknown]
  - Pain in extremity [Unknown]
  - Pain [Unknown]
  - Intervertebral disc protrusion [Unknown]
  - Hypersensitivity [Unknown]
